FAERS Safety Report 17300865 (Version 1)
Quarter: 2020Q1

REPORT INFORMATION
  Report Type: Spontaneous
  Country: US (occurrence: US)
  Receive Date: 20200122
  Receipt Date: 20200122
  Transmission Date: 20200409
  Serious: No
  Sender: FDA-Public Use
  Company Number: US-PERRIGO-19US008159

PATIENT
  Age: 6 Year
  Sex: Female
  Weight: 27.21 kg

DRUGS (2)
  1. PERMETHRIN. [Suspect]
     Active Substance: PERMETHRIN
     Indication: LICE INFESTATION
     Dosage: 60 ML, TWICE IN 9 DAYS
     Route: 061
     Dates: start: 20190531, end: 20190608
  2. PERMETHRIN. [Suspect]
     Active Substance: PERMETHRIN
     Dosage: 60 ML, TWICE IN 4 DAYS
     Route: 061
     Dates: start: 20190628, end: 20190701

REACTIONS (3)
  - Inappropriate schedule of product administration [Recovered/Resolved]
  - Product administration error [Recovered/Resolved]
  - Rash [Not Recovered/Not Resolved]

NARRATIVE: CASE EVENT DATE: 20190628
